FAERS Safety Report 24359103 (Version 4)
Quarter: 2024Q4

REPORT INFORMATION
  Report Type: Report from Study
  Country: US (occurrence: US)
  Receive Date: 20240924
  Receipt Date: 20241029
  Transmission Date: 20250114
  Serious: Yes (Hospitalization, Other)
  Sender: XERIS PHARMACEUTICALS
  Company Number: US-BRIAN CONNER SVP QUALITY AND CHIEF COMPLIANCE OFFICER-2024XER00513

PATIENT
  Sex: Female

DRUGS (4)
  1. KEVEYIS [Suspect]
     Active Substance: DICHLORPHENAMIDE
     Indication: Paralysis
     Dosage: UNK
     Dates: start: 20200929, end: 2020
  2. KEVEYIS [Suspect]
     Active Substance: DICHLORPHENAMIDE
     Dosage: UNK
  3. KEVEYIS [Suspect]
     Active Substance: DICHLORPHENAMIDE
     Dosage: 1 TABLET (50 MG), 1X/DAY
     Route: 048
  4. KEVEYIS [Suspect]
     Active Substance: DICHLORPHENAMIDE
     Dosage: 1/4 TABLET (12.5 MG), ONCE
     Route: 048
     Dates: start: 20241011, end: 2024

REACTIONS (18)
  - Gait disturbance [Recovered/Resolved]
  - Tendon pain [Recovered/Resolved]
  - Paraesthesia [Recovered/Resolved]
  - Swelling [Recovered/Resolved]
  - Oxygen therapy [Not Recovered/Not Resolved]
  - Pain [Unknown]
  - Illness [Unknown]
  - Feeling cold [Recovering/Resolving]
  - Myalgia [Recovering/Resolving]
  - Flushing [Recovering/Resolving]
  - Cough [Recovering/Resolving]
  - Insomnia [Unknown]
  - Influenza like illness [Unknown]
  - Pain in extremity [Not Recovered/Not Resolved]
  - Fall [Recovered/Resolved]
  - Pruritus [Recovering/Resolving]
  - Headache [Recovering/Resolving]
  - Dyspnoea [Recovering/Resolving]

NARRATIVE: CASE EVENT DATE: 20200101
